FAERS Safety Report 25265021 (Version 1)
Quarter: 2025Q2

REPORT INFORMATION
  Report Type: Spontaneous
  Country: US (occurrence: US)
  Receive Date: 20250502
  Receipt Date: 20250502
  Transmission Date: 20250716
  Serious: Yes (Death)
  Sender: SYMOGEN
  Company Number: US-PARTNER THERAPEUTICS-2025PTX00043

PATIENT
  Age: 62 Year
  Sex: Male
  Weight: 68.027 kg

DRUGS (5)
  1. LEUKINE [Suspect]
     Active Substance: SARGRAMOSTIM
     Indication: Prostate cancer
     Dosage: 250 ?G, 1X/DAY
     Route: 058
     Dates: start: 20250122
  2. YERVOY [Concomitant]
     Active Substance: IPILIMUMAB
  3. DOCETAXEL [Concomitant]
     Active Substance: DOCETAXEL
  4. ELIGARD [Concomitant]
     Active Substance: LEUPROLIDE ACETATE
  5. VITAMIN D3 [Concomitant]
     Active Substance: CHOLECALCIFEROL

REACTIONS (2)
  - Death [Fatal]
  - Off label use [Unknown]

NARRATIVE: CASE EVENT DATE: 20250122
